FAERS Safety Report 11972127 (Version 2)
Quarter: 2016Q1

REPORT INFORMATION
  Report Type: Report from Study
  Country: BR (occurrence: BR)
  Receive Date: 20160128
  Receipt Date: 20160212
  Transmission Date: 20160526
  Serious: Yes (Other)
  Sender: FDA-Public Use
  Company Number: PHHY2015BR109367

PATIENT
  Sex: Female
  Weight: 86 kg

DRUGS (3)
  1. FORASEQ [Concomitant]
     Active Substance: BUDESONIDE\FORMOTEROL FUMARATE
     Indication: ASTHMA
     Dosage: 1 CAPSULE OF EACH TREATMENT, BID
     Route: 055
  2. XOLAIR [Suspect]
     Active Substance: OMALIZUMAB
     Indication: ASTHMA
     Dosage: 150 MG, BIW
     Route: 058
     Dates: start: 20060211
  3. AEROLIN [Suspect]
     Active Substance: ALBUTEROL
     Indication: PRODUCT USED FOR UNKNOWN INDICATION
     Dosage: UNK UNK, BID
     Route: 065

REACTIONS (12)
  - Dyspnoea [Recovering/Resolving]
  - Iron deficiency anaemia [Not Recovered/Not Resolved]
  - Movement disorder [Recovering/Resolving]
  - Gait disturbance [Unknown]
  - Concomitant disease aggravated [Not Recovered/Not Resolved]
  - Dependence [Unknown]
  - Asthenia [Not Recovered/Not Resolved]
  - Asthma [Not Recovered/Not Resolved]
  - Mental disorder [Unknown]
  - Restless legs syndrome [Not Recovered/Not Resolved]
  - Depression [Not Recovered/Not Resolved]
  - Suffocation feeling [Recovering/Resolving]
